FAERS Safety Report 6439799-1 (Version None)
Quarter: 2009Q4

REPORT INFORMATION
  Report Type: 
  Country: None (occurrence: None)
  Receive Date: 20091113
  Receipt Date: 20090811
  Transmission Date: 20100525
  Serious: Yes (Other)
  Sender: FDA-Public Use
  Company Number: US-MERCK-0908USA02153

PATIENT
  Age: 79 Year
  Sex: Male

DRUGS (3)
  1. MEVACOR [Suspect]
     Route: 048
  2. GEMFIBROZIL [Suspect]
     Route: 048
  3. LINEZOLID [Suspect]
     Route: 042

REACTIONS (2)
  - BLOOD CREATINE PHOSPHOKINASE INCREASED [None]
  - DRUG INTERACTION [None]
